FAERS Safety Report 9282752 (Version 2)
Quarter: 2013Q2

REPORT INFORMATION
  Report Type: Spontaneous
  Country: US (occurrence: None)
  Receive Date: 20130506
  Receipt Date: 20130517
  Transmission Date: 20140414
  Serious: Yes (Hospitalization, Other)
  Sender: FDA-Public Use
  Company Number: KAD201304-000506

PATIENT
  Age: 67 Year
  Sex: Male

DRUGS (5)
  1. RIBAVIRIN [Suspect]
     Indication: HEPATITIS C
     Dates: start: 200704
  2. PEG-INTERFERON ALFA-2B [Suspect]
     Indication: HEPATITIS C
     Dates: start: 200704, end: 200710
  3. ENTECAVIR [Suspect]
     Route: 048
     Dates: start: 200706, end: 200809
  4. TACROLIMUS [Concomitant]
  5. MYCOPHENOLATE MOFETIL [Concomitant]

REACTIONS (1)
  - Acute hepatitis B [None]
